FAERS Safety Report 20951629 (Version 1)
Quarter: 2022Q2

REPORT INFORMATION
  Report Type: Spontaneous
  Country: None (occurrence: DE)
  Receive Date: 20220613
  Receipt Date: 20220613
  Transmission Date: 20220721
  Serious: Yes (Other)
  Sender: FDA-Public Use
  Company Number: DE-B.Braun Medical Inc.-2129768

PATIENT
  Age: 71 Year
  Sex: Male

DRUGS (17)
  1. HEPARIN SODIUM IN DEXTROSE [Suspect]
     Active Substance: HEPARIN SODIUM
  2. IPILIMUMAB [Suspect]
     Active Substance: IPILIMUMAB
  3. NIVOLUMAB [Suspect]
     Active Substance: NIVOLUMAB
  4. TAZOBACTAM [Concomitant]
     Active Substance: TAZOBACTAM
  5. POTASSIUM CITRATE MONOHYDRATE [Concomitant]
  6. SODIUM [Concomitant]
     Active Substance: SODIUM
  7. METAMIZOLE SODIUM [Concomitant]
     Active Substance: METAMIZOLE SODIUM
  8. COTRIMOXAZOLE [Concomitant]
     Active Substance: SULFAMETHOXAZOLE\TRIMETHOPRIM
  9. INSULIN LISPRO [Concomitant]
     Active Substance: INSULIN LISPRO
  10. METHYLPREDNISOLONE [Concomitant]
     Active Substance: METHYLPREDNISOLONE
  11. CHOLECALCIFEROL [Concomitant]
     Active Substance: CHOLECALCIFEROL
  12. MEROPENEM [Concomitant]
     Active Substance: MEROPENEM
  13. SULFAMETHOXAZOLE\TRIMETHOPRIM [Concomitant]
     Active Substance: SULFAMETHOXAZOLE\TRIMETHOPRIM
  14. AMPICILLIN [Concomitant]
     Active Substance: AMPICILLIN
  15. PREDNISOLONE [Concomitant]
     Active Substance: PREDNISOLONE
  16. Ciprofoxacin hydrochloride monohydrate [Concomitant]
  17. PIPERACILLIN SODIUM [Concomitant]
     Active Substance: PIPERACILLIN SODIUM

REACTIONS (20)
  - Adrenomegaly [None]
  - Metastases to meninges [None]
  - Pulmonary oedema [None]
  - Tachycardia [None]
  - Klebsiella infection [None]
  - Device related infection [None]
  - Hypertensive crisis [None]
  - Retinal detachment [None]
  - Acute kidney injury [None]
  - Adrenal insufficiency [None]
  - Hyperglycaemia [None]
  - Blood pressure increased [None]
  - Meningitis [None]
  - Heparin-induced thrombocytopenia [None]
  - Addison^s disease [None]
  - Malignant neoplasm progression [None]
  - Chest pain [None]
  - Urosepsis [None]
  - Colitis [None]
  - Dyspnoea [None]
